FAERS Safety Report 12944033 (Version 1)
Quarter: 2016Q4

REPORT INFORMATION
  Report Type: Spontaneous
  Country: US (occurrence: US)
  Receive Date: 20161115
  Receipt Date: 20161115
  Transmission Date: 20170207
  Serious: Yes (Other)
  Sender: FDA-Public Use
  Company Number: US-ROCHE-1710957

PATIENT
  Sex: Female

DRUGS (3)
  1. HERCEPTIN [Suspect]
     Active Substance: TRASTUZUMAB
     Indication: HER-2 POSITIVE BREAST CANCER
     Route: 042
  2. TAXOTERE [Concomitant]
     Active Substance: DOCETAXEL
     Indication: HER-2 POSITIVE BREAST CANCER
  3. TAXOL [Concomitant]
     Active Substance: PACLITAXEL
     Indication: BREAST CANCER

REACTIONS (3)
  - Dyspnoea [Unknown]
  - Interstitial lung disease [Unknown]
  - Pyrexia [Unknown]

NARRATIVE: CASE EVENT DATE: 201601
